FAERS Safety Report 8994461 (Version 1)
Quarter: 2012Q4

REPORT INFORMATION
  Report Type: Spontaneous
  Country: US (occurrence: None)
  Receive Date: 20121228
  Receipt Date: 20121228
  Transmission Date: 20130627
  Serious: Yes (Hospitalization)
  Sender: FDA-Public Use
  Company Number: None

PATIENT
  Age: 61 Year
  Sex: Female
  Weight: 108.86 kg

DRUGS (4)
  1. DIPRIVAN [Suspect]
     Indication: SEDATION
     Dosage: 250 mg - 300 mg IVP
     Dates: start: 20120919
  2. DIPRIVAN [Suspect]
     Indication: COLONOSCOPY
     Dosage: 250 mg - 300 mg IVP
     Dates: start: 20120919
  3. DIPRIVAN [Suspect]
     Indication: ESOPHAGOGASTRODUODENOSCOPY
     Dosage: 250 mg - 300 mg IVP
     Dates: start: 20120919
  4. PROPOFOL [Suspect]

REACTIONS (3)
  - Drug hypersensitivity [None]
  - Blindness transient [None]
  - Vision blurred [None]
